FAERS Safety Report 19447419 (Version 2)
Quarter: 2021Q2

REPORT INFORMATION
  Report Type: Spontaneous
  Country: DE (occurrence: DE)
  Receive Date: 20210622
  Receipt Date: 20210624
  Transmission Date: 20210717
  Serious: Yes (Death, Other)
  Sender: FDA-Public Use
  Company Number: DE-ASTELLAS-2021US022051

PATIENT
  Age: 59 Year
  Sex: Female

DRUGS (25)
  1. PREDNISOLONE. [Suspect]
     Active Substance: PREDNISOLONE
     Indication: ERYTHEMA
     Dosage: 500 MG, ONCE DAILY (FROM DAY 41)
     Route: 042
  2. PREDNISOLONE. [Suspect]
     Active Substance: PREDNISOLONE
     Dosage: 80 MG, ONCE DAILY (TAPERED DOWN 500MG TO 80MG ON D 51 TO 58 THEN 60MG ON D 76)
     Route: 042
  3. PREDNISOLONE. [Suspect]
     Active Substance: PREDNISOLONE
     Dosage: 500 MG, ONCE DAILY (ON DAY 85)
     Route: 042
  4. PREDNISOLONE. [Suspect]
     Active Substance: PREDNISOLONE
     Dosage: 200 MG, ONCE DAILY (TAPERED DOWN 500MG TO 200MG/DAY IN DAYS 90?93)
     Route: 042
  5. BUDESONIDE. [Suspect]
     Active Substance: BUDESONIDE
     Indication: PNEUMONITIS
     Dosage: 1 ML, ONCE DAILY (250 MG/ML, D71)
     Route: 050
  6. BUDESONIDE. [Suspect]
     Active Substance: BUDESONIDE
     Indication: CONJUNCTIVITIS
     Dosage: 1 ML, TWICE DAILY (250 MG/ML, D86)
     Route: 050
  7. TOCILIZUMAB. [Suspect]
     Active Substance: TOCILIZUMAB
     Indication: PNEUMONITIS
  8. TOCILIZUMAB. [Suspect]
     Active Substance: TOCILIZUMAB
     Indication: CONJUNCTIVITIS
  9. ATEZOLIZUMAB. [Suspect]
     Active Substance: ATEZOLIZUMAB
     Indication: FOLLICULAR LYMPHOMA STAGE III
     Dosage: 1200 MG, CYCLIC. (D1 OF C2?6)
     Route: 065
  10. TACROLIMUS. [Suspect]
     Active Substance: TACROLIMUS
     Indication: PNEUMONITIS
  11. TACROLIMUS. [Suspect]
     Active Substance: TACROLIMUS
     Indication: CONJUNCTIVITIS
  12. PREDNISOLONE. [Suspect]
     Active Substance: PREDNISOLONE
     Dosage: 100 MG, ONCE DAILY (ON DAY 82)
     Route: 042
  13. BUDESONIDE. [Suspect]
     Active Substance: BUDESONIDE
     Indication: ERYTHEMA
     Dosage: 1 ML, ONCE DAILY (250 MG/ML, D48)
     Route: 050
  14. TOCILIZUMAB. [Suspect]
     Active Substance: TOCILIZUMAB
     Indication: ERYTHEMA
     Dosage: 3000 MG, UNKNOWN FREQ. (ON DAY 44 AND DAY 85)
     Route: 042
  15. PREDNISOLONE. [Suspect]
     Active Substance: PREDNISOLONE
     Indication: PNEUMONITIS
     Dosage: 20 MG, ONCE DAILY (FROM DAY 47?48)
     Route: 042
  16. BENDAMUSTINE HYDROCHLORIDE. [Suspect]
     Active Substance: BENDAMUSTINE HYDROCHLORIDE
     Indication: FOLLICULAR LYMPHOMA STAGE III
     Dosage: UNK UNK, CYCLIC
     Route: 042
     Dates: start: 2017
  17. TACROLIMUS. [Suspect]
     Active Substance: TACROLIMUS
     Indication: ERYTHEMA
     Dosage: 2 MG, TWICE DAILY (ON DAY 56)
     Route: 048
  18. TACROLIMUS. [Suspect]
     Active Substance: TACROLIMUS
     Indication: STOMATITIS
     Dosage: 1 MG, TWICE DAILY (TAPERED DOWN ON DAY 61)
     Route: 048
  19. BUDESONIDE. [Suspect]
     Active Substance: BUDESONIDE
     Indication: STOMATITIS
     Dosage: 1 ML, TWICE DAILY (250 MG/ML, D61)
     Route: 050
  20. TOCILIZUMAB. [Suspect]
     Active Substance: TOCILIZUMAB
     Indication: STOMATITIS
  21. OBINUTUZUMAB. [Suspect]
     Active Substance: OBINUTUZUMAB
     Indication: FOLLICULAR LYMPHOMA STAGE III
     Dosage: 1000 MG, CYCLIC (D1, D8, D15 OF C1; D1 OF C2?6)
     Route: 065
  22. PREDNISOLONE. [Suspect]
     Active Substance: PREDNISOLONE
     Dosage: 60 MG, ONCE DAILY (TAPERED 500MG TO 80MG ON DAY 51?58 THEN TO 60MG ON D 76)
     Route: 042
  23. PREDNISOLONE. [Suspect]
     Active Substance: PREDNISOLONE
     Indication: STOMATITIS
     Dosage: 500 MG, TWICE DAILY (FROM DAY 42?46)
     Route: 042
  24. PREDNISOLONE. [Suspect]
     Active Substance: PREDNISOLONE
     Indication: CONJUNCTIVITIS
     Dosage: 500 MG, ONCE DAILY (ON DAY 50)
     Route: 042
  25. POLATUZUMAB VEDOTIN. [Suspect]
     Active Substance: POLATUZUMAB VEDOTIN
     Indication: FOLLICULAR LYMPHOMA STAGE III
     Dosage: 1.8 MG/KG, CYCLIC (D1 OF CYCLE 1?6)
     Route: 065

REACTIONS (10)
  - Immune system disorder [Unknown]
  - Product use in unapproved indication [Unknown]
  - Erythema [Recovering/Resolving]
  - Cytomegalovirus infection [Unknown]
  - Bronchopulmonary aspergillosis [Fatal]
  - Conjunctivitis [Recovering/Resolving]
  - Pneumonitis [Not Recovered/Not Resolved]
  - Product use in unapproved indication [Unknown]
  - Stomatitis [Recovering/Resolving]
  - Opportunistic infection [Unknown]

NARRATIVE: CASE EVENT DATE: 2017
